FAERS Safety Report 14127087 (Version 1)
Quarter: 2017Q4

REPORT INFORMATION
  Report Type: Spontaneous
  Country: US (occurrence: US)
  Receive Date: 20171026
  Receipt Date: 20171026
  Transmission Date: 20180321
  Serious: No
  Sender: FDA-Public Use
  Company Number: US-G+W LABS-GW2017US000114

PATIENT

DRUGS (1)
  1. CLINDAMYCIN PHOSPHATE. [Suspect]
     Active Substance: CLINDAMYCIN PHOSPHATE
     Indication: PRODUCT USED FOR UNKNOWN INDICATION
     Dosage: 1 %, BID
     Route: 061
     Dates: start: 201602

REACTIONS (2)
  - Drug administration error [Unknown]
  - Accidental exposure to product [Unknown]
